FAERS Safety Report 16238529 (Version 1)
Quarter: 2019Q2

REPORT INFORMATION
  Report Type: Spontaneous
  Country: NL (occurrence: NL)
  Receive Date: 20190425
  Receipt Date: 20190425
  Transmission Date: 20190711
  Serious: Yes (Hospitalization)
  Sender: FDA-Public Use
  Company Number: NL-009507513-1901NLD010380

PATIENT
  Age: 68 Year
  Sex: Female
  Weight: 86 kg

DRUGS (3)
  1. CHOLECALCIFEROL [Suspect]
     Active Substance: CHOLECALCIFEROL
     Indication: VITAMIN D DEFICIENCY
     Dosage: 400 IU, QD
     Route: 048
     Dates: start: 20190110, end: 20190129
  2. METOCLOPRAMIDE. [Suspect]
     Active Substance: METOCLOPRAMIDE
     Dosage: 10 MG, QD
     Route: 048
     Dates: end: 20190129
  3. KEYTRUDA [Suspect]
     Active Substance: PEMBROLIZUMAB
     Indication: NON-SMALL CELL LUNG CANCER STAGE IV
     Dosage: 200 MILLIGRAM, Q3W
     Route: 042
     Dates: start: 20181105, end: 20181217

REACTIONS (7)
  - Pruritus [Recovering/Resolving]
  - Skin discolouration [Recovering/Resolving]
  - Skin reaction [Unknown]
  - Nausea [Unknown]
  - Skin discolouration [Recovered/Resolved]
  - Eczema nummular [Unknown]
  - Dry skin [Unknown]

NARRATIVE: CASE EVENT DATE: 20181122
